FAERS Safety Report 18422800 (Version 1)
Quarter: 2020Q4

REPORT INFORMATION
  Report Type: Spontaneous
  Country: GB (occurrence: GB)
  Receive Date: 20201023
  Receipt Date: 20201023
  Transmission Date: 20210114
  Serious: Yes (Other)
  Sender: FDA-Public Use
  Company Number: GB-ASCEND THERAPEUTICS US, LLC-2093077

PATIENT
  Age: 50 Year
  Sex: Female
  Weight: 80 kg

DRUGS (6)
  1. HORMONE REPLACEMENT THERAPY NOS (HORMONES), UNKNOWN [Concomitant]
     Route: 065
  2. ESTROGEL [Suspect]
     Active Substance: ESTRADIOL
     Indication: MENOPAUSE
     Route: 061
     Dates: start: 20200420
  3. RIVAROXABAN (RIVAROXABAN), UNKNOWN?INDICATION FOR USE: ANTICOAGULANT T [Concomitant]
     Route: 065
  4. ESTROGEL [Suspect]
     Active Substance: ESTRADIOL
  5. CITALOPRAM [Concomitant]
     Active Substance: CITALOPRAM HYDROBROMIDE
     Route: 065
  6. OESTRODOSE (ESTRADIOL)?INDICATION FOR USE: MENOPAUSE [Suspect]
     Active Substance: ESTRADIOL
     Route: 061
     Dates: start: 20200420

REACTIONS (3)
  - Product substitution issue [Unknown]
  - Menopausal symptoms [Unknown]
  - Drug ineffective [Not Recovered/Not Resolved]
